FAERS Safety Report 8596621-5 (Version None)
Quarter: 2012Q3

REPORT INFORMATION
  Report Type: 
  Country: None (occurrence: None)
  Receive Date: 20120815
  Receipt Date: 20120807
  Transmission Date: 20120928
  Serious: Yes (Other)
  Sender: FDA-Public Use
  Company Number: BE-BRISTOL-MYERS SQUIBB COMPANY-16845588

PATIENT
  Age: 62 Year
  Sex: Male

DRUGS (1)
  1. YERVOY [Suspect]
     Dosage: NO OF INFUSIONS:2
     Dates: start: 20120625

REACTIONS (1)
  - BURNS THIRD DEGREE [None]
